FAERS Safety Report 9639644 (Version 1)
Quarter: 2013Q4

REPORT INFORMATION
  Report Type: Spontaneous
  Country: CA (occurrence: CA)
  Receive Date: 20131023
  Receipt Date: 20131023
  Transmission Date: 20140711
  Serious: Yes (Other)
  Sender: FDA-Public Use
  Company Number: CA-ROCHE-1290108

PATIENT
  Age: 68 Year
  Sex: Male

DRUGS (14)
  1. MYCOPHENOLATE MOFETIL [Suspect]
     Indication: PRODUCT USED FOR UNKNOWN INDICATION
     Dosage: THERAPY DURATION: 2.0 DAYS
     Route: 065
  2. ALLOPURINOL [Concomitant]
     Route: 065
  3. COLCHICINE [Concomitant]
     Route: 065
  4. DEMEROL [Concomitant]
     Route: 065
  5. DIOVAN [Concomitant]
     Route: 065
  6. DOMPERIDONE [Concomitant]
     Route: 065
  7. HYDROCHLOROTHIAZIDE [Concomitant]
     Route: 065
  8. LASIX [Concomitant]
     Route: 065
  9. METFORMIN [Concomitant]
     Route: 065
  10. NORVASC [Concomitant]
     Route: 065
  11. OXYCODONE/ACETAMINOPHEN [Concomitant]
     Route: 065
  12. PLAVIX [Concomitant]
     Route: 065
  13. PROGRAF [Concomitant]
     Route: 065
  14. VASOTEC [Concomitant]
     Route: 065

REACTIONS (4)
  - Blood pressure increased [Recovered/Resolved]
  - Chest pain [Recovered/Resolved]
  - Sleep disorder [Recovered/Resolved]
  - Throat tightness [Recovered/Resolved]
